FAERS Safety Report 5249916-7 (Version None)
Quarter: 2007Q1

REPORT INFORMATION
  Report Type: 
  Country: None (occurrence: None)
  Receive Date: 20070228
  Receipt Date: 20060124
  Transmission Date: 20070707
  Serious: No
  Sender: FDA-Public Use
  Company Number: US-GLAXOSMITHKLINE-A0586841A

PATIENT
  Age: 3 Year
  Sex: Male
  Weight: 22 kg

DRUGS (1)
  1. LAMICTAL [Suspect]
     Route: 048
     Dates: start: 20051222, end: 20051222

REACTIONS (1)
  - OVERDOSE [None]
